FAERS Safety Report 10452923 (Version 1)
Quarter: 2014Q3

REPORT INFORMATION
  Report Type: Spontaneous
  Country: US (occurrence: None)
  Receive Date: 20140912
  Receipt Date: 20140912
  Transmission Date: 20150326
  Serious: No
  Sender: FDA-Public Use
  Company Number: None

PATIENT
  Sex: Male

DRUGS (2)
  1. CLOFARABINE [Suspect]
     Active Substance: CLOFARABINE
     Indication: MYELODYSPLASTIC SYNDROME
  2. CLOFARABINE [Suspect]
     Active Substance: CLOFARABINE
     Indication: FIBROSIS

REACTIONS (7)
  - Pancytopenia [None]
  - Febrile neutropenia [None]
  - Respiratory failure [None]
  - Pulse absent [None]
  - Septic shock [None]
  - Renal impairment [None]
  - Cardiac arrest [None]

NARRATIVE: CASE EVENT DATE: 20140831
